FAERS Safety Report 7150831-2 (Version None)
Quarter: 2010Q4

REPORT INFORMATION
  Report Type: 
  Country: None (occurrence: None)
  Receive Date: 20101210
  Receipt Date: 20101202
  Transmission Date: 20110411
  Serious: Yes (Other)
  Sender: FDA-Public Use
  Company Number: US-ROCHE-737464

PATIENT
  Sex: Female
  Weight: 49.9 kg

DRUGS (3)
  1. BONIVA [Suspect]
     Indication: OSTEOPOROSIS
     Route: 042
     Dates: start: 20091101
  2. LISINOPRIL [Concomitant]
  3. TIMOPTIC [Concomitant]

REACTIONS (3)
  - MYALGIA [None]
  - TORTICOLLIS [None]
  - UVEITIS [None]
